FAERS Safety Report 4472633-8 (Version None)
Quarter: 2004Q4

REPORT INFORMATION
  Report Type: 
  Country: None (occurrence: None)
  Receive Date: 20041008
  Receipt Date: 20040929
  Transmission Date: 20050328
  Serious: Yes (Other)
  Sender: FDA-Public Use
  Company Number: 2004-08-0248

PATIENT
  Age: 55 Year
  Sex: Male

DRUGS (1)
  1. ELOCON [Suspect]
     Indication: BLEPHARITIS
     Dosage: 0.1% DAILY* TOP-DERM
     Route: 061
     Dates: start: 20000101

REACTIONS (2)
  - CORNEAL OEDEMA [None]
  - GLAUCOMA [None]
